FAERS Safety Report 9256963 (Version 1)
Quarter: 2013Q2

REPORT INFORMATION
  Report Type: Spontaneous
  Country: US (occurrence: None)
  Receive Date: 20130423
  Receipt Date: 20130423
  Transmission Date: 20140414
  Serious: Yes (Other)
  Sender: FDA-Public Use
  Company Number: JPI-P-031292

PATIENT
  Age: 40 Year
  Sex: Female

DRUGS (2)
  1. XYREM (500 MILLIGRAM/MILLILITERS, SOLUTION) (SODIUM OXYBATE) [Suspect]
     Indication: NARCOLEPSY
     Route: 048
     Dates: start: 200803
  2. DULOXETINE [Concomitant]

REACTIONS (4)
  - Colitis microscopic [None]
  - Herpes zoster [None]
  - Sinus tachycardia [None]
  - Bile duct stenosis [None]
